FAERS Safety Report 8898466 (Version 5)
Quarter: 2013Q2

REPORT INFORMATION
  Report Type: Spontaneous
  Country: US (occurrence: US)
  Receive Date: 20121109
  Receipt Date: 20130426
  Transmission Date: 20140414
  Serious: No
  Sender: FDA-Public Use
  Company Number: US-009507513-1211USA001306

PATIENT
  Age: 22 Year
  Sex: Female

DRUGS (1)
  1. IMPLANON [Suspect]
     Dosage: UNK
     Route: 059
     Dates: start: 20110920, end: 20121107

REACTIONS (6)
  - Abdominal distension [Unknown]
  - Headache [Unknown]
  - Breast tenderness [Unknown]
  - Menstruation normal [Unknown]
  - Device breakage [Unknown]
  - Medical device complication [Unknown]
